FAERS Safety Report 9868074 (Version 1)
Quarter: 2014Q1

REPORT INFORMATION
  Report Type: Spontaneous
  Country: IT (occurrence: IT)
  Receive Date: 20140204
  Receipt Date: 20140204
  Transmission Date: 20141002
  Serious: Yes (Other)
  Sender: FDA-Public Use
  Company Number: IT-BAYER-2014-017907

PATIENT
  Age: 14 Year
  Sex: Male

DRUGS (1)
  1. ASPIRINA [Suspect]
     Indication: OROPHARYNGEAL PAIN
     Dosage: 500 MG, ONCE
     Route: 048
     Dates: start: 20140119, end: 20140119

REACTIONS (2)
  - Urticaria [Recovering/Resolving]
  - Angioedema [Recovering/Resolving]
